FAERS Safety Report 8114735-0 (Version None)
Quarter: 2012Q1

REPORT INFORMATION
  Report Type: 
  Country: None (occurrence: None)
  Receive Date: 20120202
  Receipt Date: 20120202
  Transmission Date: 20120608
  Serious: Yes (Hospitalization)
  Sender: FDA-Public Use
  Company Number: None

PATIENT
  Age: 73 Year
  Sex: Male

DRUGS (1)
  1. ETODOLAC [Suspect]
     Dosage: 400MG TID 047

REACTIONS (1)
  - DUODENAL ULCER PERFORATION [None]
